FAERS Safety Report 8429342-X (Version None)
Quarter: 2012Q2

REPORT INFORMATION
  Report Type: 
  Country: None (occurrence: None)
  Receive Date: 20120323
  Receipt Date: 20111019
  Transmission Date: 20120825
  Serious: Yes (Hospitalization)
  Sender: FDA-Public Use
  Company Number: 163-21880-11072872

PATIENT
  Age: 71 Year
  Sex: Female
  Weight: 79.3795 kg

DRUGS (6)
  1. DEXAMETHASONE [Concomitant]
  2. LENALIDOMIDE [Suspect]
     Indication: MULTIPLE MYELOMA
     Dosage: 25 MG, X 21 DAYS, PO ; 25 MG, EVERY OTHER DAY, PO
     Route: 048
     Dates: start: 20101129, end: 20110913
  3. SINGULAIR [Concomitant]
  4. ZOCOR [Concomitant]
  5. AMBIEN [Concomitant]
  6. TOPROL-XL [Concomitant]

REACTIONS (2)
  - RENAL FAILURE [None]
  - CONDITION AGGRAVATED [None]
